FAERS Safety Report 7517198-9 (Version None)
Quarter: 2011Q2

REPORT INFORMATION
  Report Type: 
  Country: None (occurrence: None)
  Receive Date: 20110601
  Receipt Date: 20110528
  Transmission Date: 20111010
  Serious: Yes (Other)
  Sender: FDA-Public Use
  Company Number: US-PFIZER INC-2011105858

PATIENT
  Sex: Male
  Weight: 112 kg

DRUGS (23)
  1. COMBIVENT [Concomitant]
     Dosage: UNK
  2. EFFEXOR [Concomitant]
     Indication: MAJOR DEPRESSION
     Dosage: 150 MG, 1X/DAY
     Route: 048
  3. ULTRAM [Concomitant]
     Indication: ARTHRALGIA
     Dosage: 60 MG, 2X/DAY
     Route: 048
     Dates: end: 20110501
  4. CHANTIX [Suspect]
     Indication: SMOKING CESSATION THERAPY
     Dosage: 0.5 MG, 1X/DAY
     Route: 048
     Dates: start: 20110513
  5. TOPROL-XL [Concomitant]
     Indication: HYPERTENSION
     Dosage: 100 MG, 1X/DAY
     Route: 048
  6. VISTARIL [Concomitant]
     Indication: ANXIETY
     Dosage: 50 MG, 3X/DAY
     Route: 048
  7. CAMPRAL [Concomitant]
     Dosage: UNK
  8. TAMSULOSIN [Concomitant]
     Dosage: 0.4 MG
     Route: 048
  9. NAPROXEN [Concomitant]
     Indication: BONE DISORDER
     Dosage: 500 MG, 3X/DAY
     Route: 048
  10. EFFEXOR XR [Concomitant]
     Indication: MAJOR DEPRESSION
     Dosage: UNK
  11. NEURONTIN [Concomitant]
     Indication: ARTHRALGIA
     Dosage: 400 MG, 3X/DAY
  12. COMBIVENT [Concomitant]
     Indication: ASTHMA
     Dosage: TO PUFFS TWICE DAILY AS NEEDED
  13. LOVASTATIN [Concomitant]
     Indication: BLOOD CHOLESTEROL INCREASED
     Dosage: 20 MG, 1X/DAY
     Route: 048
     Dates: end: 20110501
  14. TOPROL-XL [Concomitant]
     Dosage: UNK
  15. LOVASTATIN [Concomitant]
     Dosage: 40 MG
     Route: 048
  16. SYMBICORT [Concomitant]
     Indication: ASTHMA
     Dosage: 160/4.5MCG TWICE DAILY
  17. SYMBICORT [Concomitant]
     Dosage: UNK
  18. VISTARIL [Concomitant]
     Dosage: UNK
  19. BENICAR HCT [Concomitant]
     Indication: HYPERTENSION
     Dosage: 40/25MG DAILY
     Route: 048
  20. CAMPRAL [Concomitant]
     Indication: ALCOHOLISM
     Dosage: 666 MG, 3X/DAY
     Route: 048
  21. NAPROXEN [Concomitant]
     Indication: ARTHRALGIA
     Dosage: 500 MG, 2X/DAY
     Route: 048
     Dates: end: 20110501
  22. TAMSULOSIN [Concomitant]
     Indication: URINARY TRACT INFECTION
     Dosage: 0.5 MG, 1X/DAY
     Route: 048
     Dates: end: 20110501
  23. ULTRAM [Concomitant]
     Indication: BONE DISORDER
     Dosage: 50 MG, 3X/DAY
     Route: 048

REACTIONS (3)
  - OROPHARYNGEAL BLISTERING [None]
  - DYSPHAGIA [None]
  - PHARYNGEAL OEDEMA [None]
